FAERS Safety Report 7242798-3 (Version None)
Quarter: 2011Q1

REPORT INFORMATION
  Report Type: 
  Country: None (occurrence: None)
  Receive Date: 20110125
  Receipt Date: 20110118
  Transmission Date: 20110831
  Serious: Yes (Other)
  Sender: FDA-Public Use
  Company Number: US-AMGEN-USASP2011003355

PATIENT
  Age: 58 Year
  Sex: Female

DRUGS (3)
  1. REMICADE [Concomitant]
     Dosage: UNK
     Dates: end: 20100101
  2. ENBREL [Suspect]
     Indication: RHEUMATOID ARTHRITIS
     Dosage: 50 MG, QWK
     Dates: start: 20040624
  3. GOLIMUMAB [Concomitant]
     Dosage: UNK
     Dates: start: 20090101

REACTIONS (6)
  - DRUG INEFFECTIVE [None]
  - FATIGUE [None]
  - DIPLEGIA [None]
  - HYPERHIDROSIS [None]
  - PYREXIA [None]
  - INJECTION SITE PAIN [None]
